FAERS Safety Report 18841309 (Version 11)
Quarter: 2021Q1

REPORT INFORMATION
  Report Type: Spontaneous
  Country: GB (occurrence: GB)
  Receive Date: 20210204
  Receipt Date: 20210325
  Transmission Date: 20210419
  Serious: Yes (Hospitalization, Other)
  Sender: FDA-Public Use
  Company Number: GB-JNJFOC-20200532969

PATIENT
  Age: 59 Year
  Sex: Male

DRUGS (36)
  1. HALOPERIDOL. [Suspect]
     Active Substance: HALOPERIDOL
     Dosage: 10 MILLIGRAM, BID
     Route: 065
  2. OLANZAPINE. [Suspect]
     Active Substance: OLANZAPINE
     Dosage: 10 UNK
     Route: 065
  3. RISPERDAL [Suspect]
     Active Substance: RISPERIDONE
     Dosage: 2 MILLIGRAM, BID
     Route: 065
  4. RISPERDAL [Suspect]
     Active Substance: RISPERIDONE
     Dosage: 3 MILLIGRAM, BID
     Route: 065
  5. CLOPIXOL                           /00876702/ [Suspect]
     Active Substance: ZUCLOPENTHIXOL ACETATE
     Dosage: 400 MILLIGRAM, BIWEEKLY
     Route: 065
     Dates: start: 20041018, end: 20041018
  6. CLOZARIL [Suspect]
     Active Substance: CLOZAPINE
     Dosage: 275 MILLIGRAM, PM?OFF LABEL USE
     Route: 065
  7. CLOZARIL [Suspect]
     Active Substance: CLOZAPINE
     Dosage: 200 MILLIGRAM, BID?OFF LABEL USE
     Route: 065
  8. CLOPIXOL                           /00876702/ [Suspect]
     Active Substance: ZUCLOPENTHIXOL ACETATE
     Dosage: 300 MILLIGRAM I.M WEEKLY
     Route: 030
     Dates: start: 20091009
  9. CLOPIXOL                           /00876702/ [Suspect]
     Active Substance: ZUCLOPENTHIXOL ACETATE
     Dosage: 300 MILLIGRAM, QD
     Route: 030
     Dates: start: 20091009
  10. CLOZARIL [Suspect]
     Active Substance: CLOZAPINE
     Indication: SCHIZOPHRENIA
     Dosage: 300 MILLIGRAM, PM?OFF LABEL USE
     Route: 065
  11. HALOPERIDOL. [Suspect]
     Active Substance: HALOPERIDOL
     Indication: PRODUCT USED FOR UNKNOWN INDICATION
     Dosage: 5 MILLIGRAM, BID
     Route: 065
  12. RISPERDAL [Suspect]
     Active Substance: RISPERIDONE
     Dosage: 1 MILLIGRAM, QD
     Route: 065
  13. CLOPIXOL                           /00876702/ [Suspect]
     Active Substance: ZUCLOPENTHIXOL ACETATE
     Dosage: 400 MILLIGRAM, BIWEEKLY
     Route: 065
     Dates: start: 20040601, end: 20041018
  14. CLOPIXOL                           /00876702/ [Suspect]
     Active Substance: ZUCLOPENTHIXOL ACETATE
     Dosage: UNK
     Route: 065
  15. CLOZARIL [Suspect]
     Active Substance: CLOZAPINE
     Dosage: 200 MILLIGRAM, BID?OFF LABEL USE
     Route: 048
     Dates: start: 20191209, end: 20191223
  16. OLANZAPINE. [Suspect]
     Active Substance: OLANZAPINE
     Dosage: 15 UNK
     Route: 065
     Dates: start: 20040217
  17. CLOZARIL [Suspect]
     Active Substance: CLOZAPINE
     Dosage: OFF LABEL USE
     Route: 048
     Dates: start: 20200521
  18. CLOZARIL [Suspect]
     Active Substance: CLOZAPINE
     Dosage: 200 MILLIGRAM, BID
     Route: 065
  19. OLANZAPINE. [Suspect]
     Active Substance: OLANZAPINE
     Dosage: 15 UNK
     Route: 065
     Dates: start: 20060704
  20. LORAZEPAM. [Suspect]
     Active Substance: LORAZEPAM
     Indication: SCHIZOPHRENIA
     Dosage: 1 MILLIGRAM
     Route: 048
  21. CLOPIXOL                           /00876702/ [Suspect]
     Active Substance: ZUCLOPENTHIXOL ACETATE
     Indication: PRODUCT USED FOR UNKNOWN INDICATION
     Dosage: 400 MILLIGRAM, BIWEEKLY
     Route: 065
     Dates: start: 20030204, end: 20040217
  22. LITHIUM. [Suspect]
     Active Substance: LITHIUM
     Indication: PRODUCT USED FOR UNKNOWN INDICATION
     Dosage: 1 GRAM
     Route: 065
  23. CLOZARIL [Suspect]
     Active Substance: CLOZAPINE
     Dosage: 100 MILLIGRAM, AM?OFF LABEL USE
     Route: 065
  24. CLOZARIL [Suspect]
     Active Substance: CLOZAPINE
     Dosage: UNK?OFF LABEL USE
     Route: 048
     Dates: start: 20100823
  25. CLOZARIL [Suspect]
     Active Substance: CLOZAPINE
     Dosage: 50 MILLIGRAM MIDDAY?OFF LABEL USE
     Route: 065
  26. CLOZARIL [Suspect]
     Active Substance: CLOZAPINE
     Route: 048
     Dates: start: 20191223, end: 20191223
  27. RISPERDAL [Suspect]
     Active Substance: RISPERIDONE
     Indication: SCHIZOPHRENIA
     Dosage: 3 MILLIGRAM, BID
     Route: 048
  28. RISPERDAL [Suspect]
     Active Substance: RISPERIDONE
     Dosage: 1 GRAM, QD
     Route: 065
  29. RISPERDAL [Suspect]
     Active Substance: RISPERIDONE
     Dosage: 2 MILLIGRAM, BID
     Route: 065
  30. CLOZARIL [Suspect]
     Active Substance: CLOZAPINE
     Dosage: OFF LABEL USE
     Route: 048
     Dates: start: 20201207
  31. OLANZAPINE. [Suspect]
     Active Substance: OLANZAPINE
     Indication: SCHIZOPHRENIA
     Dosage: 2.5 UNK
     Route: 065
     Dates: start: 20080823
  32. CHLORPROMAZINE. [Suspect]
     Active Substance: CHLORPROMAZINE
     Indication: SCHIZOPHRENIA
     Dosage: 75 MILLIGRAM
     Route: 065
  33. HALOPERIDOL. [Suspect]
     Active Substance: HALOPERIDOL
     Indication: SCHIZOPHRENIA
     Dosage: 5 MILLIGRAM, BID
     Route: 048
  34. CLOPIXOL                           /00876702/ [Suspect]
     Active Substance: ZUCLOPENTHIXOL ACETATE
     Dosage: 400 MILLIGRAM, WEEKLY
     Route: 065
     Dates: start: 20040217, end: 20040601
  35. CLOZARIL [Suspect]
     Active Substance: CLOZAPINE
     Indication: SCHIZOPHRENIA
     Dosage: UNK UNK, AM?OFF LABEL USE
     Route: 065
     Dates: start: 2011
  36. ARIPIPRAZOL [Suspect]
     Active Substance: ARIPIPRAZOLE
     Indication: SCHIZOPHRENIA
     Dosage: 5 MILLIGRAM
     Route: 065

REACTIONS (13)
  - Extrapyramidal disorder [Unknown]
  - Leukopenia [Recovered/Resolved]
  - Neutropenia [Recovered/Resolved]
  - Lymphocyte count decreased [Unknown]
  - Affective disorder [Recovered/Resolved]
  - Fatigue [Unknown]
  - Psychotic disorder [Recovered/Resolved]
  - Hospitalisation [Unknown]
  - Schizophrenia [Not Recovered/Not Resolved]
  - Delusion of grandeur [Unknown]
  - Platelet count decreased [Recovered/Resolved]
  - Hallucination, auditory [Unknown]
  - Neutrophil count increased [Unknown]

NARRATIVE: CASE EVENT DATE: 20191126
